FAERS Safety Report 5834922-1 (Version None)
Quarter: 2008Q3

REPORT INFORMATION
  Report Type: 
  Country: None (occurrence: None)
  Receive Date: 20080804
  Receipt Date: 20080718
  Transmission Date: 20090109
  Serious: Yes (Hospitalization)
  Sender: FDA-Public Use
  Company Number: 2008BI016655

PATIENT
  Age: 33 Year
  Sex: Female

DRUGS (3)
  1. TYSABRI [Suspect]
     Indication: MULTIPLE SCLEROSIS
     Dosage: 300 UG; QM; IV
     Route: 042
     Dates: start: 20070308
  2. LEVETIRACETAM [Concomitant]
  3. MIRTAZAPINE [Concomitant]

REACTIONS (4)
  - DRUG DOSE OMISSION [None]
  - EPILEPSY [None]
  - HEADACHE [None]
  - NAUSEA [None]
